FAERS Safety Report 20896369 (Version 1)
Quarter: 2022Q2

REPORT INFORMATION
  Report Type: Report from Study
  Country: US (occurrence: US)
  Receive Date: 20220531
  Receipt Date: 20220531
  Transmission Date: 20220721
  Serious: Yes (Hospitalization)
  Sender: FDA-Public Use
  Company Number: US-PFIZER INC-202200751221

PATIENT
  Age: 53 Year
  Sex: Female
  Weight: 162.8 kg

DRUGS (18)
  1. INOTUZUMAB OZOGAMICIN [Suspect]
     Active Substance: INOTUZUMAB OZOGAMICIN
  2. DASATINIB [Suspect]
     Active Substance: DASATINIB
  3. DEXAMETHASONE [Suspect]
     Active Substance: DEXAMETHASONE
  4. ZOVIRAX [Concomitant]
     Active Substance: ACYCLOVIR
     Dosage: 1 TABLET, TWICE DAILY
     Route: 048
  5. ALBUTEROL SULFATE [Concomitant]
     Active Substance: ALBUTEROL SULFATE
     Indication: Dyspnoea
     Dosage: 90 MCG/ACTUATION INHALER; INHALE 2 PUFFS BY MOUTH EVERY 6 HOURS AS NEEDED
  6. NORVASC [Concomitant]
     Active Substance: AMLODIPINE BESYLATE
     Dosage: 1 TABLET, DAILY
     Route: 048
  7. VITAMIN D3 [Concomitant]
     Active Substance: CHOLECALCIFEROL
     Dosage: 1250 MCG (50000 UNIT) CAP CAPSULE, 1 CAPSULE, EVERY 7 DAYS (ON TUESDAYS)
     Route: 048
  8. PEPCID [Concomitant]
     Active Substance: FAMOTIDINE
     Dosage: 1 TABLET, TWICE DAILY
     Route: 048
  9. NEURONTIN [Concomitant]
     Active Substance: GABAPENTIN
     Dosage: 3 CAPSULES, THREE TIMES DAILY
     Route: 048
  10. NOVOLOG [Concomitant]
     Active Substance: INSULIN ASPART
     Dosage: INJECT 20 UNITS UNDER THE SKIN THREE TIMES DAILY WITH MEALS PLUS CORRECTION USING THE FOLLOWING SCAL
  11. INSULIN GLARGINE [Concomitant]
     Active Substance: INSULIN GLARGINE
     Dosage: INJECT 32 UNITS UNDER THE SKIN EVERY NIGHT AT BEDTIME
  12. GLUCOPHAGE [Concomitant]
     Active Substance: METFORMIN HYDROCHLORIDE
     Dosage: 1 TABLET, TWICE DAILY WITH MEALS
     Route: 048
  13. PREDNISONE [Concomitant]
     Active Substance: PREDNISONE
     Dosage: TAKE 6 TABLETS (60MG) BY MOUTH DAILY FOR 4 DAYS, THEN 5.5 TABLETS (55MG) DAILY FOR 7 DAYS, THEN 5 TA
     Route: 048
  14. BACTRIM DS [Concomitant]
     Active Substance: SULFAMETHOXAZOLE\TRIMETHOPRIM
     Dosage: TAKE 1 TABLET TWICE DAILY ON SATURDAY AND SUNDAY
     Route: 048
  15. ULTRAM [Concomitant]
     Active Substance: TRAMADOL HYDROCHLORIDE
     Indication: Pain
     Dosage: 1 TABLET, EVERY 6 HOURS AS NEEDED
     Route: 048
  16. ACTIGALL [Concomitant]
     Active Substance: URSODIOL
     Dosage: 1 CAPSULE, TWICE DAILY
     Route: 048
  17. VFEND [Concomitant]
     Active Substance: VORICONAZOLE
     Dosage: 2 TABLETS, TWICE DAILY
     Route: 048
  18. ZINC OXIDE [Concomitant]
     Active Substance: ZINC OXIDE
     Indication: Skin irritation
     Dosage: APPLY TO THE AFFECTED AREA(S) EVERY 4 HOURS AS NEEDED

REACTIONS (1)
  - Hypervolaemia [Recovering/Resolving]

NARRATIVE: CASE EVENT DATE: 20220522
